FAERS Safety Report 24019774 (Version 3)
Quarter: 2024Q3

REPORT INFORMATION
  Report Type: Spontaneous
  Country: CO (occurrence: CO)
  Receive Date: 20240627
  Receipt Date: 20240715
  Transmission Date: 20241017
  Serious: Yes (Hospitalization, Other)
  Sender: REGENERON
  Company Number: CO-SA-SAC20240620000797

PATIENT
  Age: 76 Year
  Sex: Female

DRUGS (4)
  1. PRALUENT [Suspect]
     Active Substance: ALIROCUMAB
     Indication: Dyslipidaemia
     Dosage: 1 DF, QOW
     Route: 058
     Dates: start: 202405, end: 202406
  2. PRALUENT [Suspect]
     Active Substance: ALIROCUMAB
     Indication: Acute myocardial infarction
  3. ROSUVASTATIN CALCIUM [Suspect]
     Active Substance: ROSUVASTATIN CALCIUM
     Indication: Low density lipoprotein increased
     Dosage: UNK
     Dates: start: 202405, end: 202406
  4. ROSUVASTATIN CALCIUM [Suspect]
     Active Substance: ROSUVASTATIN CALCIUM
     Indication: Acute myocardial infarction

REACTIONS (6)
  - Renal failure [Unknown]
  - Mobility decreased [Unknown]
  - Muscular weakness [Unknown]
  - Pain in extremity [Unknown]
  - Myalgia [Unknown]
  - Asthenia [Unknown]

NARRATIVE: CASE EVENT DATE: 20240601
